FAERS Safety Report 5471044-6 (Version None)
Quarter: 2007Q3

REPORT INFORMATION
  Report Type: 
  Country: None (occurrence: None)
  Receive Date: 20070928
  Receipt Date: 20070921
  Transmission Date: 20080115
  Serious: Yes (Hospitalization, Other)
  Sender: FDA-Public Use
  Company Number: B0489130A

PATIENT
  Age: 65 Year
  Sex: Male
  Weight: 100 kg

DRUGS (8)
  1. ZYBAN [Suspect]
     Indication: SMOKING CESSATION THERAPY
     Dosage: 150MG TWICE PER DAY
     Route: 048
     Dates: start: 20070720, end: 20070810
  2. AMLODIPINE [Concomitant]
     Route: 048
     Dates: start: 20030101
  3. ASPIRIN [Concomitant]
     Route: 048
     Dates: start: 20030101
  4. ATORVASTATIN CALCIUM [Concomitant]
     Route: 048
     Dates: start: 20030101
  5. BENDROFLUMETHIAZIDE [Concomitant]
     Route: 048
     Dates: start: 20030101
  6. DIPYRIDAMOLE [Concomitant]
     Route: 048
     Dates: start: 20030101
  7. EZETIMIBE [Concomitant]
     Dosage: 10MG PER DAY
     Route: 048
     Dates: start: 20030101
  8. PERINDOPRIL ERBUMINE [Concomitant]
     Dosage: 8MG PER DAY
     Route: 048
     Dates: start: 20030101

REACTIONS (3)
  - HEPATIC FUNCTION ABNORMAL [None]
  - LETHARGY [None]
  - RENAL FAILURE [None]
